FAERS Safety Report 11179977 (Version 1)
Quarter: 2015Q2

REPORT INFORMATION
  Report Type: Spontaneous
  Country: US (occurrence: US)
  Receive Date: 20150611
  Receipt Date: 20150611
  Transmission Date: 20150821
  Serious: No
  Sender: FDA-Public Use
  Company Number: US-TEVA-565719USA

PATIENT
  Age: 52 Year
  Sex: Female

DRUGS (1)
  1. CAPECITABINE. [Suspect]
     Active Substance: CAPECITABINE
     Indication: BREAST CANCER FEMALE
     Dosage: 4000 MILLIGRAM DAILY; FOR 14 DAYS THEN OFF 7 DAYS
     Route: 048
     Dates: start: 20150421

REACTIONS (1)
  - Rash generalised [Recovered/Resolved]
